FAERS Safety Report 4901129-1 (Version None)
Quarter: 2006Q1

REPORT INFORMATION
  Report Type: 
  Country: None (occurrence: None)
  Receive Date: 20060201
  Receipt Date: 20060120
  Transmission Date: 20060701
  Serious: Yes (Death)
  Sender: FDA-Public Use
  Company Number: 2006012251

PATIENT
  Age: 74 Year
  Sex: Female
  Weight: 68 kg

DRUGS (3)
  1. GENOTROPIN [Suspect]
     Indication: HYPOPITUITARISM
     Dosage: 0,2 NG (1 IN 1 D)
     Dates: start: 19991026
  2. THYROXINE (LEVOTHYROXINE) [Concomitant]
  3. TESTOSTERON (TESTOSTERONE PROPIONATE) [Concomitant]

REACTIONS (1)
  - METASTATIC BRONCHIAL CARCINOMA [None]
